FAERS Safety Report 7071615-X (Version None)
Quarter: 2010Q4

REPORT INFORMATION
  Report Type: 
  Country: None (occurrence: None)
  Receive Date: 20101029
  Receipt Date: 20091030
  Transmission Date: 20110411
  Serious: No
  Sender: FDA-Public Use
  Company Number: A0809327A

PATIENT
  Age: 66 Year
  Sex: Female

DRUGS (3)
  1. ADVAIR DISKUS 100/50 [Suspect]
     Indication: CHRONIC OBSTRUCTIVE PULMONARY DISEASE
     Dosage: 1PUFF TWICE PER DAY
     Route: 055
     Dates: start: 20090701
  2. SODIUM CHLORIDE 0.9% [Concomitant]
     Indication: ILL-DEFINED DISORDER
     Route: 045
  3. ADVIL [Concomitant]

REACTIONS (5)
  - NASOPHARYNGITIS [None]
  - OROPHARYNGEAL PAIN [None]
  - PRODUCT QUALITY ISSUE [None]
  - SINUSITIS [None]
  - THROAT IRRITATION [None]
